FAERS Safety Report 6564712-6 (Version None)
Quarter: 2010Q1

REPORT INFORMATION
  Report Type: 
  Country: None (occurrence: None)
  Receive Date: 20100201
  Receipt Date: 20091123
  Transmission Date: 20100710
  Serious: No
  Sender: FDA-Public Use
  Company Number: A0823509A

PATIENT
  Age: 23 Year
  Sex: Female

DRUGS (2)
  1. TREXIMET [Suspect]
     Indication: MIGRAINE
     Dosage: 2TAB PER DAY
     Route: 048
     Dates: start: 20091123, end: 20091123
  2. NO CONCURRENT MEDICATION [Concomitant]

REACTIONS (1)
  - PAIN IN JAW [None]
